FAERS Safety Report 8444002-7 (Version None)
Quarter: 2012Q2

REPORT INFORMATION
  Report Type: 
  Country: None (occurrence: None)
  Receive Date: 20120618
  Receipt Date: 20120612
  Transmission Date: 20120825
  Serious: Yes (Hospitalization, Other)
  Sender: FDA-Public Use
  Company Number: PHHY2012ZA051397

PATIENT
  Sex: Female

DRUGS (6)
  1. CALTRATE PLUS [Concomitant]
     Indication: MINERAL SUPPLEMENTATION
  2. PURESIS [Concomitant]
  3. CIPROFLOXACIN [Concomitant]
  4. CENTRUM A TO ZINC [Concomitant]
  5. VALSARTAN [Suspect]
     Indication: HYPERTENSION
     Dosage: 160 MG, UNK
  6. WARFARIN SODIUM [Concomitant]

REACTIONS (5)
  - WEIGHT INCREASED [None]
  - CYSTITIS [None]
  - HYPERSENSITIVITY [None]
  - HAEMOCHROMATOSIS [None]
  - OEDEMA PERIPHERAL [None]
